FAERS Safety Report 8621610-1 (Version None)
Quarter: 2012Q3

REPORT INFORMATION
  Report Type: 
  Country: None (occurrence: None)
  Receive Date: 20120820
  Receipt Date: 20120820
  Transmission Date: 20120928
  Serious: Yes (Life-Threatening, Hospitalization)
  Sender: FDA-Public Use
  Company Number: None

PATIENT
  Sex: Male
  Weight: 83.8247 kg

DRUGS (13)
  1. VYTORIN [Concomitant]
  2. BENICAR [Concomitant]
  3. LUPRON [Concomitant]
  4. COMPAZINE [Concomitant]
  5. HUMALOG [Concomitant]
  6. PLAVIX [Concomitant]
  7. LANTUS [Concomitant]
  8. METOPROLOL TARTRATE [Concomitant]
  9. IRON [Concomitant]
  10. VICODIN [Concomitant]
  11. OCTREOTIDE PAMOATE LAR (SMS201995) [Suspect]
     Indication: PROSTATE CANCER
     Dosage: 20 MG IM ONCE
     Route: 030
     Dates: start: 20120808
  12. JEVTANA KIT [Suspect]
     Indication: PROSTATE CANCER
     Dosage: 50 MG IV
     Route: 042
     Dates: start: 20120808
  13. MIRALAX [Concomitant]

REACTIONS (4)
  - NEUTROPENIA [None]
  - GASTROINTESTINAL HAEMORRHAGE [None]
  - SEPSIS [None]
  - BLOOD GLUCOSE DECREASED [None]
